FAERS Safety Report 15555591 (Version 2)
Quarter: 2018Q4

REPORT INFORMATION
  Report Type: Report from Study
  Country: None (occurrence: CA)
  Receive Date: 20181026
  Receipt Date: 20181120
  Transmission Date: 20190205
  Serious: Yes (Hospitalization)
  Sender: FDA-Public Use
  Company Number: CA-ABBVIE-18S-028-2531444-00

PATIENT
  Age: 30 Year
  Sex: Female
  Weight: 63.56 kg

DRUGS (1)
  1. LUPRON DEPOT [Suspect]
     Active Substance: LEUPROLIDE ACETATE
     Indication: ENDOMETRIOSIS
     Route: 030
     Dates: start: 20180416, end: 20180615

REACTIONS (2)
  - Pelvic pain [Unknown]
  - Hysterectomy [Recovered/Resolved]

NARRATIVE: CASE EVENT DATE: 20181018
